FAERS Safety Report 6741708-2 (Version None)
Quarter: 2010Q2

REPORT INFORMATION
  Report Type: 
  Country: None (occurrence: None)
  Receive Date: 20100524
  Receipt Date: 20100506
  Transmission Date: 20101027
  Serious: Yes (Hospitalization)
  Sender: FDA-Public Use
  Company Number: BCN-AS-2010-RR-087

PATIENT
  Age: 56 Year
  Sex: Male

DRUGS (1)
  1. FLECAINIDE ACETATE [Suspect]
     Dosage: ORAL
     Route: 048

REACTIONS (5)
  - ALCOHOL USE [None]
  - ATRIAL FLUTTER [None]
  - BUNDLE BRANCH BLOCK [None]
  - PALPITATIONS [None]
  - TACHYCARDIA [None]
